FAERS Safety Report 5048150-3 (Version None)
Quarter: 2006Q3

REPORT INFORMATION
  Report Type: 
  Country: None (occurrence: None)
  Receive Date: 20060711
  Receipt Date: 20060706
  Transmission Date: 20061208
  Serious: Yes (Hospitalization, Other)
  Sender: FDA-Public Use
  Company Number: BR-JNJFOC-20060701321

PATIENT
  Age: 19 Year
  Sex: Male
  Weight: 60 kg

DRUGS (3)
  1. HALDOL [Suspect]
     Indication: NERVOUS SYSTEM DISORDER
     Route: 048
  2. UNKNOWN MEDICATION [Concomitant]
     Indication: HYPERTENSION
     Route: 048
  3. RIVOTRIL [Concomitant]
     Indication: PANIC DISORDER
     Route: 048

REACTIONS (3)
  - FATIGUE [None]
  - NASOPHARYNGITIS [None]
  - SOMNOLENCE [None]
